FAERS Safety Report 6114440-6 (Version None)
Quarter: 2009Q1

REPORT INFORMATION
  Report Type: 
  Country: None (occurrence: None)
  Receive Date: 20090313
  Receipt Date: 20090305
  Transmission Date: 20090719
  Serious: Yes (Other)
  Sender: FDA-Public Use
  Company Number: PHHY2009CA08362

PATIENT
  Sex: Male

DRUGS (2)
  1. DIOVAN HCT [Suspect]
     Dosage: 80/12.5 MG, QD
     Route: 048
     Dates: start: 20070101
  2. DIOVAN [Suspect]
     Dosage: 80 MG, QD
     Route: 048
     Dates: start: 20060301, end: 20070101

REACTIONS (3)
  - BIOPSY PROSTATE [None]
  - PROSTATE CANCER [None]
  - PROSTATOMEGALY [None]
